FAERS Safety Report 8381717 (Version 3)
Quarter: 2012Q4

REPORT INFORMATION
  Report Type: 
  Country: US (occurrence: US)
  Receive Date: 20120201
  Receipt Date: 20121214
  Transmission Date: 20130627
  Serious: No
  Sender: FDA-Public Use
  Company Number: US-PFIZER INC-2012022239

PATIENT
  Age: 51 Year
  Sex: Female

DRUGS (7)
  1. LYRICA [Suspect]
     Indication: NERVE PAIN
     Dosage: 150 mg, 2x/day
     Route: 048
     Dates: start: 2011
  2. LYRICA [Suspect]
     Indication: HEADACHE
     Dosage: 150 mg, (daily)
     Route: 048
  3. LYRICA [Suspect]
     Indication: FIBROMYALGIA
  4. ZOLOFT [Concomitant]
     Dosage: 100 mg, (daily)
  5. VICODIN [Concomitant]
     Dosage: [hydrocodone bitartrate 5mg]/ [paracetamol 500 mg] in am and pm
  6. FLEXERIL [Concomitant]
     Dosage: 10 mg in am and pm
  7. MOTRIN [Concomitant]
     Dosage: 800 mg in am and pm

REACTIONS (6)
  - Oedema peripheral [Recovered/Resolved]
  - Joint swelling [Recovered/Resolved]
  - Drug intolerance [Recovered/Resolved]
  - Oedema [Recovered/Resolved]
  - Weight increased [Unknown]
  - Intentional drug misuse [Unknown]
